FAERS Safety Report 20316140 (Version 3)
Quarter: 2022Q1

REPORT INFORMATION
  Report Type: Spontaneous
  Country: US (occurrence: US)
  Receive Date: 20220110
  Receipt Date: 20220228
  Transmission Date: 20220424
  Serious: Yes (Life-Threatening, Hospitalization, Other)
  Sender: FDA-Public Use
  Company Number: US-CIPLA LTD.-2021US08450

PATIENT

DRUGS (5)
  1. CELECOXIB [Suspect]
     Active Substance: CELECOXIB
     Dosage: 52, UNK
     Route: 048
     Dates: start: 20210520
  2. FLEXERIL [Suspect]
     Active Substance: CYCLOBENZAPRINE HYDROCHLORIDE
     Dosage: 81, UNK
     Route: 048
     Dates: start: 20210520
  3. ADVIL [Suspect]
     Active Substance: IBUPROFEN
     Dosage: 500, UNK
     Route: 048
     Dates: start: 20210520
  4. TRAMADOL [Suspect]
     Active Substance: TRAMADOL
     Dosage: 74, UNK
     Route: 048
     Dates: start: 20210520
  5. ACETAMINOPHEN [Suspect]
     Active Substance: ACETAMINOPHEN
     Dosage: UNK
     Route: 048
     Dates: start: 20210520

REACTIONS (7)
  - Intentional overdose [Unknown]
  - Oxygen saturation decreased [Recovering/Resolving]
  - Respiratory acidosis [Recovering/Resolving]
  - Toxicity to various agents [Recovering/Resolving]
  - Analgesic drug level increased [Recovering/Resolving]
  - Drug level increased [Recovering/Resolving]
  - Coma [Recovered/Resolved]

NARRATIVE: CASE EVENT DATE: 20210501
